FAERS Safety Report 19300894 (Version 1)
Quarter: 2021Q2

REPORT INFORMATION
  Report Type: Spontaneous
  Country: US (occurrence: US)
  Receive Date: 20210525
  Receipt Date: 20210525
  Transmission Date: 20210717
  Serious: No
  Sender: FDA-Public Use
  Company Number: US-BIOVITRUM-2020US4981

PATIENT
  Age: 17 Year
  Sex: Female

DRUGS (1)
  1. KINERET [Suspect]
     Active Substance: ANAKINRA
     Indication: AUTOINFLAMMATORY DISEASE
     Route: 058
     Dates: start: 20190220

REACTIONS (6)
  - Gastrointestinal disorder [Unknown]
  - Fatigue [Unknown]
  - Arthralgia [Unknown]
  - Headache [Unknown]
  - Product dose omission issue [Recovered/Resolved]
  - Off label use [Recovered/Resolved]

NARRATIVE: CASE EVENT DATE: 201902
